FAERS Safety Report 21012097 (Version 2)
Quarter: 2022Q3

REPORT INFORMATION
  Report Type: Spontaneous
  Country: CN (occurrence: CN)
  Receive Date: 20220627
  Receipt Date: 20220701
  Transmission Date: 20221027
  Serious: Yes (Other)
  Sender: FDA-Public Use
  Company Number: None

PATIENT
  Age: 7 Year
  Sex: Female
  Weight: 19 kg

DRUGS (6)
  1. CYCLOPHOSPHAMIDE [Suspect]
     Active Substance: CYCLOPHOSPHAMIDE
     Indication: Neuroblastoma
     Dosage: 0.39 G ONCE DAILY,  4: 1 GLUCOSE SODIUM CHLORIDE INJECTION 250ML + CYCLOPHOSPHAMIDE FOR INJECTION 0.
     Route: 041
     Dates: start: 20220113, end: 20220116
  2. DEXTROSE\SODIUM CHLORIDE [Suspect]
     Active Substance: DEXTROSE\SODIUM CHLORIDE
     Indication: Medication dilution
     Dosage: 4: 1 GLUCOSE SODIUM CHLORIDE INJECTION 250ML + CYCLOPHOSPHAMIDE FOR INJECTION 0.39 G
     Route: 041
     Dates: start: 20220113, end: 20220116
  3. DEXTROSE\SODIUM CHLORIDE [Suspect]
     Active Substance: DEXTROSE\SODIUM CHLORIDE
     Dosage: 4: 1 GLUCOSE AND SODIUM CHLORIDE INJECTION 100ML + TOPOTECAN 1.1MG, INTRAVENOUS DRIP
     Route: 041
     Dates: start: 20220113, end: 20220116
  4. SODIUM CHLORIDE [Suspect]
     Active Substance: SODIUM CHLORIDE
     Indication: Medication dilution
     Dosage: UNK UNK, QD, 0.9% SODIUM CHLORIDE INJECTION + VINDESINE SULFATE (2.3 MG)
     Route: 041
     Dates: start: 20220113, end: 20220113
  5. VINDESINE SULFATE [Suspect]
     Active Substance: VINDESINE SULFATE
     Indication: Neuroblastoma
     Dosage: 2.3 MG, ONCE DAILY, 0.9% SODIUM CHLORIDE INJECTION + VINDESINE SULFATE (2.3 MG)
     Route: 041
     Dates: start: 20220113, end: 20220113
  6. TOPOTECAN [Suspect]
     Active Substance: TOPOTECAN HYDROCHLORIDE
     Indication: Neuroblastoma
     Dosage: 4: 1 GLUCOSE AND SODIUM CHLORIDE INJECTION 100ML + TOPOTECAN 1.1MG
     Route: 041
     Dates: start: 20220113, end: 20220116

REACTIONS (1)
  - Myelosuppression [Recovering/Resolving]

NARRATIVE: CASE EVENT DATE: 20220122
